FAERS Safety Report 7974035-6 (Version None)
Quarter: 2011Q4

REPORT INFORMATION
  Report Type: 
  Country: None (occurrence: None)
  Receive Date: 20111213
  Receipt Date: 20111205
  Transmission Date: 20120403
  Serious: Yes (Death, Life-Threatening, Hospitalization, Other)
  Sender: FDA-Public Use
  Company Number: BE-GLAXOSMITHKLINE-B0765299A

PATIENT
  Sex: Male
  Weight: 77.7 kg

DRUGS (13)
  1. MOLSIDOMINE [Concomitant]
     Indication: CARDIAC DISORDER
     Route: 048
  2. VOTRIENT [Suspect]
     Indication: METASTATIC RENAL CELL CARCINOMA
     Dosage: 800MG PER DAY
     Route: 065
     Dates: start: 20111026
  3. MEDROL [Concomitant]
     Indication: NERVE COMPRESSION
     Dosage: 32MG PER DAY
     Route: 048
  4. FENTANYL [Concomitant]
     Indication: PAIN PROPHYLAXIS
     Route: 048
  5. ZOMETA [Concomitant]
     Indication: METASTASES TO BONE
     Route: 048
  6. PANTOPRAZOLE [Concomitant]
     Dosage: 40MG PER DAY
     Route: 048
  7. ASAFLOW [Concomitant]
     Dosage: 160MG PER DAY
     Route: 048
  8. MOVIPREP [Concomitant]
     Indication: CONSTIPATION
     Route: 048
  9. LORMETAZEPAM [Concomitant]
     Indication: SLEEP DISORDER
     Dosage: 2MG PER DAY
     Route: 048
  10. CORDARONE [Concomitant]
     Indication: CARDIAC DISORDER
     Route: 048
  11. LIPITOR [Concomitant]
     Indication: HYPERCHOLESTEROLAEMIA
     Dosage: 20MG PER DAY
     Route: 048
  12. IBRUPROFEN [Concomitant]
     Indication: PAIN PROPHYLAXIS
     Route: 048
  13. AMLODIPINE BESYLATE [Concomitant]
     Indication: HYPERTENSION
     Dosage: 5MG TWICE PER DAY
     Route: 048

REACTIONS (3)
  - WOUND INFECTION [None]
  - ABDOMINAL PAIN [None]
  - GASTROINTESTINAL PERFORATION [None]
